FAERS Safety Report 9717677 (Version 1)
Quarter: 2013Q4

REPORT INFORMATION
  Report Type: Spontaneous
  Country: US (occurrence: US)
  Receive Date: 20131127
  Receipt Date: 20131127
  Transmission Date: 20140711
  Serious: Yes (Death)
  Sender: FDA-Public Use
  Company Number: US-UCBSA-104085

PATIENT
  Sex: 0

DRUGS (4)
  1. LORTAB [Suspect]
  2. OXYCONTIN [Suspect]
  3. PROZAC [Suspect]
  4. VALIUM [Suspect]

REACTIONS (1)
  - Myocardial infarction [Fatal]
